FAERS Safety Report 5189975-3 (Version None)
Quarter: 2006Q4

REPORT INFORMATION
  Report Type: 
  Country: None (occurrence: None)
  Receive Date: 20061218
  Receipt Date: 20061206
  Transmission Date: 20070319
  Serious: Yes (Death)
  Sender: FDA-Public Use
  Company Number: A-CH2006-13789

PATIENT
  Age: 9 Year
  Sex: Male

DRUGS (2)
  1. TRACLEER [Suspect]
     Indication: PULMONARY HYPERTENSION
     Dosage: 31.25 MG, BID, ORAL
     Route: 048
     Dates: start: 20040301, end: 20061202
  2. SILDENAFIL CITRATE [Concomitant]

REACTIONS (4)
  - ARRHYTHMIA [None]
  - MALAISE [None]
  - NAUSEA [None]
  - SUDDEN CARDIAC DEATH [None]
